FAERS Safety Report 8548618-9 (Version None)
Quarter: 2012Q3

REPORT INFORMATION
  Report Type: 
  Country: None (occurrence: None)
  Receive Date: 20120717
  Receipt Date: 20120705
  Transmission Date: 20120928
  Serious: Yes (Hospitalization)
  Sender: FDA-Public Use
  Company Number: 1207SWE000772

PATIENT
  Age: 9 Month
  Sex: Female

DRUGS (1)
  1. CEDAX [Suspect]
     Indication: PYELONEPHRITIS
     Dosage: 63 MG, QD, ORAL
     Route: 048
     Dates: start: 20120629

REACTIONS (2)
  - PYREXIA [None]
  - INCORRECT STORAGE OF DRUG [None]
